FAERS Safety Report 8522577-7 (Version None)
Quarter: 2012Q3

REPORT INFORMATION
  Report Type: 
  Country: None (occurrence: None)
  Receive Date: 20120719
  Receipt Date: 20120712
  Transmission Date: 20120928
  Serious: Yes (Other)
  Sender: FDA-Public Use
  Company Number: CH-JNJFOC-20120708632

PATIENT
  Sex: Female

DRUGS (2)
  1. MARCUMAR [Concomitant]
  2. XARELTO [Suspect]
     Indication: PRODUCT USED FOR UNKNOWN INDICATION
     Route: 048

REACTIONS (3)
  - NAUSEA [None]
  - VENTRICULAR EXTRASYSTOLES [None]
  - DYSPNOEA [None]
